FAERS Safety Report 7451746-2 (Version None)
Quarter: 2011Q2

REPORT INFORMATION
  Report Type: 
  Country: None (occurrence: None)
  Receive Date: 20110502
  Receipt Date: 20110427
  Transmission Date: 20111010
  Serious: Yes (Other)
  Sender: FDA-Public Use
  Company Number: GB-ABBOTT-11P-167-0722248-00

PATIENT
  Age: 39 Year

DRUGS (18)
  1. BONJELA [Concomitant]
     Indication: PRODUCT USED FOR UNKNOWN INDICATION
  2. PIZOTIFEN [Concomitant]
     Indication: PRODUCT USED FOR UNKNOWN INDICATION
  3. BECLOMETHASONE DIPROPIONATE [Concomitant]
     Indication: PRODUCT USED FOR UNKNOWN INDICATION
  4. RISPERIDONE [Concomitant]
     Indication: PRODUCT USED FOR UNKNOWN INDICATION
  5. FUCIDINE CAP [Concomitant]
     Indication: PRODUCT USED FOR UNKNOWN INDICATION
  6. LOPERAMIDE [Concomitant]
     Indication: PRODUCT USED FOR UNKNOWN INDICATION
  7. MENTHA ARVENSIS [Concomitant]
     Indication: PRODUCT USED FOR UNKNOWN INDICATION
  8. ALBUTEROL SULFATE AUTOHALER [Concomitant]
     Indication: PRODUCT USED FOR UNKNOWN INDICATION
  9. VALPROIC ACID [Suspect]
     Indication: MANIA
     Route: 048
     Dates: start: 20091127
  10. ASPIRIN [Concomitant]
     Indication: PRODUCT USED FOR UNKNOWN INDICATION
  11. OLANZAPINE [Concomitant]
     Indication: PRODUCT USED FOR UNKNOWN INDICATION
  12. PARACETAMOL [Concomitant]
     Indication: PRODUCT USED FOR UNKNOWN INDICATION
  13. TRANSVASIN [Concomitant]
     Indication: PRODUCT USED FOR UNKNOWN INDICATION
  14. DIAZEPAM [Concomitant]
     Indication: PRODUCT USED FOR UNKNOWN INDICATION
  15. IPRATROPIUM BROMIDE [Concomitant]
     Indication: PRODUCT USED FOR UNKNOWN INDICATION
  16. AQUEOUS [Concomitant]
     Indication: PRODUCT USED FOR UNKNOWN INDICATION
  17. E45 ITCH RELIEF [Concomitant]
     Indication: PRODUCT USED FOR UNKNOWN INDICATION
  18. SPIRONOLACTONE [Concomitant]
     Indication: PRODUCT USED FOR UNKNOWN INDICATION

REACTIONS (2)
  - DIARRHOEA [None]
  - MENTAL DISORDER [None]
